FAERS Safety Report 14907410 (Version 1)
Quarter: 2018Q2

REPORT INFORMATION
  Report Type: Spontaneous
  Country: DK (occurrence: DK)
  Receive Date: 20180517
  Receipt Date: 20180517
  Transmission Date: 20180711
  Serious: Yes (Death, Other)
  Sender: FDA-Public Use
  Company Number: DK-ALKEM LABORATORIES LIMITED-DK-ALKEM-000469

PATIENT
  Age: 27 Year
  Sex: Male
  Weight: 125 kg

DRUGS (3)
  1. QUETIAPINE FUMARATE. [Suspect]
     Active Substance: QUETIAPINE FUMARATE
     Indication: ANXIETY DISORDER
     Dosage: UNK
     Route: 065
  2. QUETIAPINE FUMARATE. [Suspect]
     Active Substance: QUETIAPINE FUMARATE
     Indication: SOCIAL ANXIETY DISORDER
     Dosage: 400 MG, QD
     Route: 065
  3. QUETIAPINE FUMARATE. [Suspect]
     Active Substance: QUETIAPINE FUMARATE
     Indication: PSYCHOTIC DISORDER

REACTIONS (6)
  - Pancreatitis acute [Fatal]
  - Hypertriglyceridaemia [Fatal]
  - Acute respiratory distress syndrome [Unknown]
  - Diabetic ketoacidosis [Fatal]
  - Multiple organ dysfunction syndrome [Fatal]
  - Anxiety [Unknown]
